FAERS Safety Report 10106496 (Version 1)
Quarter: 2014Q2

REPORT INFORMATION
  Report Type: Report from Study
  Country: US (occurrence: US)
  Receive Date: 20140424
  Receipt Date: 20140424
  Transmission Date: 20141212
  Serious: Yes (Death, Other)
  Sender: FDA-Public Use
  Company Number: US-GILEAD-2014-0100392

PATIENT
  Age: 32 Year
  Sex: Female

DRUGS (3)
  1. SOFOSBUVIR [Suspect]
     Indication: HEPATITIS C
     Dosage: 400 MG, UNK
     Route: 048
     Dates: start: 201403, end: 201404
  2. RIBAVIRIN [Suspect]
     Indication: HEPATITIS C
     Dosage: UNK
     Route: 065
     Dates: end: 201404
  3. PEGINTERFERON ALFA [Suspect]
     Indication: HEPATITIS C
     Dosage: UNK
     Route: 065
     Dates: end: 201404

REACTIONS (5)
  - Completed suicide [Fatal]
  - Haematemesis [Unknown]
  - Epistaxis [Unknown]
  - Pyrexia [Unknown]
  - Vomiting [Unknown]
